FAERS Safety Report 22008706 (Version 1)
Quarter: 2023Q1

REPORT INFORMATION
  Report Type: Spontaneous
  Country: None (occurrence: DE)
  Receive Date: 20230219
  Receipt Date: 20230219
  Transmission Date: 20230417
  Serious: Yes (Hospitalization)
  Sender: FDA-Public Use
  Company Number: DE-Ascend Therapeutics US, LLC-2138171

PATIENT
  Age: 52 Year
  Sex: Female
  Weight: 79 kg

DRUGS (9)
  1. ESTROGEL [Suspect]
     Active Substance: ESTRADIOL
     Indication: Hormone replacement therapy
     Route: 065
     Dates: start: 202202
  2. ESTROGEL [Suspect]
     Active Substance: ESTRADIOL
  3. ESTRADIOL HEMIHYDRATE [Suspect]
     Active Substance: ESTRADIOL HEMIHYDRATE
     Route: 065
     Dates: start: 202202
  4. ESTRADIOL HEMIHYDRATE [Suspect]
     Active Substance: ESTRADIOL HEMIHYDRATE
     Route: 065
  5. ESTRADIOL HEMIHYDRATE [Suspect]
     Active Substance: ESTRADIOL HEMIHYDRATE
     Route: 065
  6. ESTRADIOL HEMIHYDRATE [Suspect]
     Active Substance: ESTRADIOL HEMIHYDRATE
     Route: 065
  7. CHLORMADINONE [Suspect]
     Active Substance: CHLORMADINONE
     Route: 065
     Dates: start: 202202
  8. ESTRIOL [Suspect]
     Active Substance: ESTRIOL
     Route: 065
     Dates: start: 2022, end: 2022
  9. ESTRIOL [Suspect]
     Active Substance: ESTRIOL
     Route: 065
     Dates: start: 2022

REACTIONS (9)
  - Uterine leiomyoma [Unknown]
  - Breast discomfort [Unknown]
  - Breast pain [Unknown]
  - Fatigue [Recovering/Resolving]
  - Breast tenderness [Unknown]
  - Therapeutic product effect decreased [None]
  - Incorrect dose administered [None]
  - Product dose omission in error [None]
  - Inappropriate schedule of product administration [None]
